FAERS Safety Report 8190852-4 (Version None)
Quarter: 2012Q1

REPORT INFORMATION
  Report Type: 
  Country: None (occurrence: None)
  Receive Date: 20120221
  Receipt Date: 20111103
  Transmission Date: 20120608
  Serious: No
  Sender: FDA-Public Use
  Company Number: 1000025199

PATIENT
  Age: 70 Year
  Sex: Female

DRUGS (6)
  1. VIIBRYD [Suspect]
     Indication: DEPRESSION
     Dosage: 10 MG (10 MG, 1 IN 1 D),ORAL, 20 MG (20 MG, 1 IN 1 D),ORAL, 40 MG (40 MG, 1 IN 1 D),ORAL
     Route: 048
     Dates: start: 20110901, end: 20111102
  2. VIIBRYD [Suspect]
     Indication: DEPRESSION
     Dosage: 10 MG (10 MG, 1 IN 1 D),ORAL, 20 MG (20 MG, 1 IN 1 D),ORAL, 40 MG (40 MG, 1 IN 1 D),ORAL
     Route: 048
     Dates: start: 20110901, end: 20110901
  3. VIIBRYD [Suspect]
     Indication: DEPRESSION
     Dosage: 10 MG (10 MG, 1 IN 1 D),ORAL, 20 MG (20 MG, 1 IN 1 D),ORAL, 40 MG (40 MG, 1 IN 1 D),ORAL
     Route: 048
     Dates: start: 20111103
  4. EVISTA [Concomitant]
  5. SEROQUEL (QUETIAPINE FUMARATE) (QUETIAPINE FUMARATE) [Concomitant]
  6. CRESTOR [Concomitant]

REACTIONS (3)
  - DIARRHOEA [None]
  - INSOMNIA [None]
  - ABNORMAL DREAMS [None]
